FAERS Safety Report 8607389-8 (Version None)
Quarter: 2012Q3

REPORT INFORMATION
  Report Type: 
  Country: None (occurrence: None)
  Receive Date: 20120821
  Receipt Date: 20120809
  Transmission Date: 20120928
  Serious: Yes (Hospitalization, Other)
  Sender: FDA-Public Use
  Company Number: US-BAYER-2012-039066

PATIENT
  Age: 24 Year
  Sex: Female
  Weight: 72.562 kg

DRUGS (5)
  1. VITAMIN D [Concomitant]
     Dosage: UNK
  2. YAZ [Suspect]
     Indication: ACNE
     Dosage: UNK
     Dates: start: 20091101, end: 20100419
  3. DOXYCYCLINE HCL [Concomitant]
     Dosage: UNK
     Dates: start: 20100121, end: 20100321
  4. ACCUTANE [Concomitant]
     Dosage: UNK
     Dates: start: 20091214, end: 20100302
  5. PREDNISONE [Concomitant]
     Dosage: UNK

REACTIONS (5)
  - DEPRESSION [None]
  - INJURY [None]
  - PAIN [None]
  - QUALITY OF LIFE DECREASED [None]
  - DEEP VEIN THROMBOSIS [None]
